FAERS Safety Report 5513518-5 (Version None)
Quarter: 2007Q4

REPORT INFORMATION
  Report Type: 
  Country: None (occurrence: None)
  Receive Date: 20071108
  Receipt Date: 20071031
  Transmission Date: 20080405
  Serious: Yes (Death, Other)
  Sender: FDA-Public Use
  Company Number: 2007SP011195

PATIENT
  Age: 70 Year
  Sex: Male
  Weight: 60 kg

DRUGS (5)
  1. TEMODAL [Suspect]
     Indication: GLIOMATOSIS CEREBRI
     Dosage: 150 MG/M2; QD; PO
     Route: 048
     Dates: start: 20060927, end: 20061001
  2. ISOBIDE [Concomitant]
  3. DEPAKENE [Concomitant]
  4. NAUZELIN [Concomitant]
  5. MAGNESIUM OXIDE [Concomitant]

REACTIONS (12)
  - ALANINE AMINOTRANSFERASE INCREASED [None]
  - BLOOD ALBUMIN DECREASED [None]
  - BLOOD CHLORIDE DECREASED [None]
  - BLOOD CREATININE DECREASED [None]
  - BLOOD GLUCOSE INCREASED [None]
  - BLOOD LACTATE DEHYDROGENASE INCREASED [None]
  - BLOOD POTASSIUM DECREASED [None]
  - BLOOD SODIUM INCREASED [None]
  - BLOOD UREA INCREASED [None]
  - DISEASE PROGRESSION [None]
  - PROTEIN TOTAL DECREASED [None]
  - VOMITING [None]
